FAERS Safety Report 10748991 (Version 1)
Quarter: 2015Q1

REPORT INFORMATION
  Report Type: Report from Study
  Country: US (occurrence: None)
  Receive Date: 20150120
  Receipt Date: 20150120
  Transmission Date: 20150721
  Serious: Yes (Other)
  Sender: FDA-Public Use
  Company Number: AEGR001050

PATIENT
  Age: 66 Year
  Sex: Female
  Weight: 57.1 kg

DRUGS (13)
  1. GLIMEPIRIDE. [Concomitant]
     Active Substance: GLIMEPIRIDE
  2. JANUMET [Concomitant]
     Active Substance: METFORMIN HYDROCHLORIDE\SITAGLIPTIN PHOSPHATE
  3. PLAVIX (CLOPIDOGREL BISULFATE) [Concomitant]
  4. RANEXA (RANOLAZINE) [Concomitant]
  5. JUXTAPID [Suspect]
     Active Substance: LOMITAPIDE MESYLATE
     Indication: TYPE IIA HYPERLIPIDAEMIA
     Dates: start: 20140110
  6. ASPIRIN (ACETYLSALICYLIC ACID) [Concomitant]
     Active Substance: ASPIRIN
  7. FUROSEMIDE. [Concomitant]
     Active Substance: FUROSEMIDE
  8. ANTARA [Concomitant]
     Active Substance: FENOFIBRATE
  9. METOPROLOL (METOPROLOL TARTRATE) [Concomitant]
     Active Substance: METOPROLOL TARTRATE
  10. DIOVAN [Concomitant]
     Active Substance: VALSARTAN
  11. KLOR-CON (POTASSIUM CHLORIDE) [Concomitant]
  12. NITROGLYCERINE (GLYCERYL TRINITRATE) [Concomitant]
  13. SPIRONOLACTONE. [Concomitant]
     Active Substance: SPIRONOLACTONE

REACTIONS (2)
  - Angina pectoris [None]
  - Diarrhoea [None]

NARRATIVE: CASE EVENT DATE: 20141121
